FAERS Safety Report 10551895 (Version 1)
Quarter: 2014Q4

REPORT INFORMATION
  Report Type: Spontaneous
  Country: US (occurrence: US)
  Receive Date: 20141029
  Receipt Date: 20141029
  Transmission Date: 20150529
  Serious: Yes (Other)
  Sender: FDA-Public Use
  Company Number: US-PFIZER INC-2014295209

PATIENT
  Age: 66 Year
  Sex: Male
  Weight: 109 kg

DRUGS (5)
  1. NEURONTIN [Suspect]
     Active Substance: GABAPENTIN
     Indication: NEUROPATHY PERIPHERAL
     Dosage: 100 MG, 3X/DAY
     Dates: start: 201408
  2. JANUMET XR [Concomitant]
     Active Substance: METFORMIN HYDROCHLORIDE\SITAGLIPTIN PHOSPHATE
     Dosage: 100/1000
  3. FLOMAX [Concomitant]
     Active Substance: TAMSULOSIN HYDROCHLORIDE
     Dosage: 0.4 MG IN THE EVENING
  4. LOTRIL [Concomitant]
     Active Substance: ENALAPRIL MALEATE
     Dosage: 10/20 ONCE A DAY
  5. NEURONTIN [Suspect]
     Active Substance: GABAPENTIN
     Dosage: TRIATION UP TO 8

REACTIONS (2)
  - Arthropathy [Unknown]
  - Drug ineffective [Not Recovered/Not Resolved]

NARRATIVE: CASE EVENT DATE: 201408
